FAERS Safety Report 12393916 (Version 1)
Quarter: 2016Q2

REPORT INFORMATION
  Report Type: Spontaneous
  Country: CA (occurrence: CA)
  Receive Date: 20160523
  Receipt Date: 20160523
  Transmission Date: 20160815
  Serious: Yes (Other)
  Sender: FDA-Public Use
  Company Number: CA-GE HEALTHCARE MEDICAL DIAGNOSTICS-VISP-PR-1605S-0293

PATIENT
  Age: 33 Year
  Sex: Female

DRUGS (2)
  1. VISIPAQUE [Suspect]
     Active Substance: IODIXANOL
     Indication: FLUID RETENTION
     Route: 042
     Dates: start: 20160511, end: 20160511
  2. VISIPAQUE [Suspect]
     Active Substance: IODIXANOL
     Indication: DIAGNOSTIC PROCEDURE

REACTIONS (3)
  - Throat irritation [Unknown]
  - Productive cough [Unknown]
  - Urticaria [Unknown]

NARRATIVE: CASE EVENT DATE: 20160511
